FAERS Safety Report 15337849 (Version 1)
Quarter: 2018Q3

REPORT INFORMATION
  Report Type: Spontaneous
  Country: US (occurrence: US)
  Receive Date: 20180827
  Receipt Date: 20180827
  Transmission Date: 20181010
  Serious: Yes (Other)
  Sender: FDA-Public Use
  Company Number: None

PATIENT
  Age: 68 Year
  Sex: Female
  Weight: 78.75 kg

DRUGS (4)
  1. REPATHA [Suspect]
     Active Substance: EVOLOCUMAB
     Indication: BLOOD CHOLESTEROL INCREASED
     Dosage: ?          QUANTITY:2 DF DOSAGE FORM;?
     Route: 030
     Dates: start: 20180608, end: 20180714
  2. SYNTHROID [Concomitant]
     Active Substance: LEVOTHYROXINE SODIUM
  3. ASPIRIN. [Concomitant]
     Active Substance: ASPIRIN
  4. NEFEDIPINE [Concomitant]

REACTIONS (7)
  - Pain [None]
  - Pyrexia [None]
  - Renal pain [None]
  - Loss of personal independence in daily activities [None]
  - Gait inability [None]
  - Asthenia [None]
  - Back pain [None]

NARRATIVE: CASE EVENT DATE: 20180727
